FAERS Safety Report 5705632-6 (Version None)
Quarter: 2008Q2

REPORT INFORMATION
  Report Type: 
  Country: None (occurrence: None)
  Receive Date: 20080415
  Receipt Date: 20080407
  Transmission Date: 20081010
  Serious: Yes (Hospitalization)
  Sender: FDA-Public Use
  Company Number: US-GENENTECH-256881

PATIENT
  Age: 79 Year
  Sex: Male

DRUGS (3)
  1. RITUXAN [Suspect]
     Indication: VASCULITIS
     Dosage: 375 MG/M2, 1/WEEK
     Route: 042
     Dates: start: 20080101
  2. PREDNISONE [Concomitant]
     Indication: DRUG USE FOR UNKNOWN INDICATION
     Dosage: 40 UNK, QD
  3. MEDICATION (UNK INGREDIENT) [Concomitant]
     Indication: DRUG USE FOR UNKNOWN INDICATION

REACTIONS (4)
  - DISEASE PROGRESSION [None]
  - MUSCLE SPASMS [None]
  - PAIN [None]
  - PANCYTOPENIA [None]
